FAERS Safety Report 7660518-5 (Version None)
Quarter: 2011Q3

REPORT INFORMATION
  Report Type: 
  Country: None (occurrence: None)
  Receive Date: 20110805
  Receipt Date: 20110802
  Transmission Date: 20111222
  Serious: Yes (Hospitalization)
  Sender: FDA-Public Use
  Company Number: AU-MERCK-1108USA00381

PATIENT
  Age: 66 Year
  Sex: Male

DRUGS (7)
  1. RITONAVIR [Suspect]
     Indication: HIV INFECTION
     Route: 048
     Dates: start: 20060607
  2. ISENTRESS [Suspect]
     Indication: HIV INFECTION
     Route: 048
     Dates: start: 20060607, end: 20090603
  3. ABACAVIR SULFATE AND LAMIVUDINE [Suspect]
     Indication: HIV INFECTION
     Route: 048
     Dates: start: 20091119
  4. ACYCLOVIR [Concomitant]
     Route: 065
  5. DARUNAVIR [Concomitant]
     Indication: HIV INFECTION
     Route: 048
     Dates: start: 20060607
  6. ETRAVIRINE [Suspect]
     Route: 048
     Dates: start: 20080326
  7. TENOFOVIR DISOPROXIL FUMARATE [Suspect]
     Indication: HIV INFECTION
     Route: 065
     Dates: start: 20060607

REACTIONS (1)
  - PNEUMONIA [None]
